FAERS Safety Report 9869944 (Version 1)
Quarter: 2014Q1

REPORT INFORMATION
  Report Type: Spontaneous
  Country: GB (occurrence: None)
  Receive Date: 20140131
  Receipt Date: 20140131
  Transmission Date: 20141002
  Serious: Yes (Hospitalization)
  Sender: FDA-Public Use
  Company Number: FK201400276

PATIENT
  Age: 50 Year
  Sex: Female
  Weight: 92 kg

DRUGS (15)
  1. FUROSEMIDE [Suspect]
     Indication: FLUID RETENTION
     Route: 048
     Dates: end: 20130730
  2. INSPRA [Suspect]
     Indication: MYOCARDIAL INFARCTION
     Route: 048
  3. SPIRONOLACTONE [Suspect]
     Indication: PRODUCT USED FOR UNKNOWN INDICATION
     Route: 048
  4. ASPIRIN (ACETYLSALICYLIC ACID) [Concomitant]
  5. ATORVASTATIN (ATORVASTATIN) [Concomitant]
  6. BISOPROLOL (BISOPROLOL) [Concomitant]
  7. EXENATIDE (EXENATIDE) [Concomitant]
  8. GLICLAZIDE (GLICLAZIDE) [Concomitant]
  9. IMDUR (ISOSORBIDE MONONITRATE) [Concomitant]
  10. IVABRADINE (IVABRADINE) [Concomitant]
  11. LANSOPRAZOLE (LANSOPRAZOLE) [Concomitant]
  12. LOSARTAN (LOSARTAN) [Concomitant]
  13. METFORMIN (METFORMIN) [Concomitant]
  14. NOVOMIX (NOVOMIX) [Concomitant]
  15. SITAGLIPTIN (SITAGLIPTIN) [Concomitant]

REACTIONS (6)
  - Renal failure acute [None]
  - Acute pulmonary oedema [None]
  - Musculoskeletal pain [None]
  - Malaise [None]
  - Vomiting [None]
  - Weight increased [None]
